FAERS Safety Report 7820317-8 (Version None)
Quarter: 2011Q4

REPORT INFORMATION
  Report Type: 
  Country: None (occurrence: None)
  Receive Date: 20111013
  Receipt Date: 20110926
  Transmission Date: 20120403
  Serious: Yes (Hospitalization, Other)
  Sender: FDA-Public Use
  Company Number: JPI-P-017340

PATIENT
  Age: 60 Year
  Sex: Male

DRUGS (2)
  1. PREDNISONE [Concomitant]
     Indication: PAIN
  2. XYREM [Suspect]
     Indication: NARCOLEPSY
     Dosage: 4.5 GM (2.25 GM, 2 IN 1 D), ORAL
     Route: 048
     Dates: start: 20070604

REACTIONS (12)
  - DEHYDRATION [None]
  - INFECTION [None]
  - LYMPHADENOPATHY [None]
  - WOUND [None]
  - TREMOR [None]
  - BLOOD PRESSURE DECREASED [None]
  - WHITE BLOOD CELL COUNT INCREASED [None]
  - TRANSIENT ISCHAEMIC ATTACK [None]
  - PAIN IN EXTREMITY [None]
  - HYPOPNOEA [None]
  - CELLULITIS [None]
  - HEAVY EXPOSURE TO ULTRAVIOLET LIGHT [None]
